FAERS Safety Report 8957527 (Version 2)
Quarter: 2013Q1

REPORT INFORMATION
  Report Type: Spontaneous
  Country: US (occurrence: US)
  Receive Date: 20121210
  Receipt Date: 20130131
  Transmission Date: 20140127
  Serious: Yes (Other)
  Sender: FDA-Public Use
  Company Number: US-PFIZER INC-2012308118

PATIENT
  Age: 66 Year
  Sex: Female

DRUGS (1)
  1. NORVASC [Suspect]
     Dosage: 5 MG, 2X/DAY
     Route: 048

REACTIONS (3)
  - Dementia [Unknown]
  - Psychotic disorder [Unknown]
  - Hyperhidrosis [Unknown]
